FAERS Safety Report 9463035 (Version 1)
Quarter: 2013Q3

REPORT INFORMATION
  Report Type: Spontaneous
  Country: US (occurrence: US)
  Receive Date: 20130816
  Receipt Date: 20130816
  Transmission Date: 20140515
  Serious: No
  Sender: FDA-Public Use
  Company Number: US-009507513-1308USA005549

PATIENT
  Age: 27 Year
  Sex: Male

DRUGS (2)
  1. PROPECIA [Suspect]
     Indication: ALOPECIA
     Dosage: 1 MG, ONCE DAILY
     Route: 048
     Dates: start: 201302
  2. PREGNENOLONE [Concomitant]

REACTIONS (2)
  - Headache [Not Recovered/Not Resolved]
  - Eyelid pain [Not Recovered/Not Resolved]
